FAERS Safety Report 5456688-X (Version None)
Quarter: 2007Q3

REPORT INFORMATION
  Report Type: 
  Country: None (occurrence: None)
  Receive Date: 20070918
  Receipt Date: 20070906
  Transmission Date: 20080115
  Serious: No
  Sender: FDA-Public Use
  Company Number: US-ELI_LILLY_AND_COMPANY-US200704005210

PATIENT
  Age: 44 Year
  Sex: Female

DRUGS (12)
  1. ZYPREXA [Suspect]
     Indication: DEPRESSION
     Dosage: 10 MG, EACH EVENING
  2. ZYPREXA [Suspect]
     Dosage: 20 MG, EACH EVENING
  3. ZYPREXA [Suspect]
     Dosage: 30 MG, EACH EVENING
     Dates: start: 20020507, end: 20020812
  4. ZYPREXA [Suspect]
     Dosage: 25 MG, EACH EVENING
  5. ZYPREXA [Suspect]
     Dosage: 5 MG, EACH EVENING
     Dates: start: 19980401, end: 20060527
  6. SEROQUEL [Concomitant]
     Dates: start: 20040601
  7. REMERON [Concomitant]
     Dosage: 15 MG, EACH EVENING
     Dates: end: 20020507
  8. REMERON [Concomitant]
     Dosage: 30 MG, EACH EVENING
     Dates: start: 20020418
  9. EFFEXOR [Concomitant]
     Dosage: 150 MG, EACH MORNING
     Dates: end: 20030913
  10. EFFEXOR [Concomitant]
     Dosage: 75 MG, EACH EVENING
  11. DALMANE [Concomitant]
     Indication: INSOMNIA
     Dosage: 30 MG, EACH EVENING
  12. HALDOL [Concomitant]
     Dosage: UNK, UNK
     Dates: end: 20010802

REACTIONS (5)
  - DYSARTHRIA [None]
  - DYSTONIA [None]
  - OVERDOSE [None]
  - SEDATION [None]
  - TARDIVE DYSKINESIA [None]
